FAERS Safety Report 13386878 (Version 1)
Quarter: 2017Q1

REPORT INFORMATION
  Report Type: Spontaneous
  Country: US (occurrence: US)
  Receive Date: 20170330
  Receipt Date: 20170330
  Transmission Date: 20170429
  Serious: No
  Sender: FDA-Public Use
  Company Number: US-AMGEN-USASP2017045899

PATIENT
  Age: 59 Year
  Sex: Male

DRUGS (1)
  1. ENBREL [Suspect]
     Active Substance: ETANERCEPT
     Indication: RHEUMATOID ARTHRITIS
     Dosage: 50 MG, QWK
     Route: 065
     Dates: start: 2016

REACTIONS (7)
  - Musculoskeletal pain [Unknown]
  - Influenza [Unknown]
  - Pleuritic pain [Unknown]
  - Gastrointestinal disorder [Unknown]
  - Dysstasia [Unknown]
  - Condition aggravated [Unknown]
  - Nasopharyngitis [Unknown]
